FAERS Safety Report 8187681-4 (Version None)
Quarter: 2012Q1

REPORT INFORMATION
  Report Type: 
  Country: None (occurrence: None)
  Receive Date: 20120306
  Receipt Date: 20120301
  Transmission Date: 20120608
  Serious: Yes (Hospitalization, Other)
  Sender: FDA-Public Use
  Company Number: DE-BAXTER-2012BH004257

PATIENT
  Age: 16 Month
  Sex: Male
  Weight: 15 kg

DRUGS (10)
  1. ADVATE [Suspect]
     Route: 065
     Dates: start: 20120104
  2. ADVATE [Suspect]
     Route: 065
     Dates: start: 20111208, end: 20120103
  3. ADVATE [Suspect]
     Route: 065
     Dates: start: 20111106, end: 20111107
  4. ADVATE [Suspect]
     Route: 065
     Dates: end: 20120127
  5. ADVATE [Suspect]
     Route: 065
     Dates: start: 20111208, end: 20120103
  6. ADVATE [Suspect]
     Route: 065
     Dates: end: 20120127
  7. ADVATE [Suspect]
     Route: 065
     Dates: start: 20111106, end: 20111107
  8. ADVATE [Suspect]
     Indication: CENTRAL VENOUS CATHETERISATION
     Route: 065
     Dates: start: 20111102, end: 20111105
  9. ADVATE [Suspect]
     Route: 065
     Dates: start: 20120104
  10. ADVATE [Suspect]
     Indication: HAEMOPHILIA
     Route: 065
     Dates: start: 20111102, end: 20111105

REACTIONS (3)
  - GASTROENTERITIS NOROVIRUS [None]
  - STAPHYLOCOCCAL SEPSIS [None]
  - FACTOR VIII INHIBITION [None]
